FAERS Safety Report 10238535 (Version 1)
Quarter: 2014Q2

REPORT INFORMATION
  Report Type: Spontaneous
  Country: US (occurrence: None)
  Receive Date: 20140613
  Receipt Date: 20140613
  Transmission Date: 20141212
  Serious: No
  Sender: FDA-Public Use
  Company Number: None

PATIENT
  Age: 46 Year
  Sex: Female
  Weight: 71 kg

DRUGS (1)
  1. CRIZOTINIB [Suspect]
     Dates: start: 20140507

REACTIONS (2)
  - Alanine aminotransferase increased [None]
  - Aspartate aminotransferase increased [None]
